FAERS Safety Report 13959959 (Version 2)
Quarter: 2017Q3

REPORT INFORMATION
  Report Type: Spontaneous
  Country: JP (occurrence: JP)
  Receive Date: 20170912
  Receipt Date: 20170926
  Transmission Date: 20171128
  Serious: Yes (Other)
  Sender: FDA-Public Use
  Company Number: JP-ELI_LILLY_AND_COMPANY-JP201706003743

PATIENT
  Age: 60 Year
  Sex: Female
  Weight: 72.5 kg

DRUGS (3)
  1. DULOXETINE HYDROCHLORIDE. [Suspect]
     Active Substance: DULOXETINE HYDROCHLORIDE
     Indication: MENISCUS INJURY
  2. DULOXETINE HYDROCHLORIDE. [Suspect]
     Active Substance: DULOXETINE HYDROCHLORIDE
     Indication: OSTEOARTHRITIS
     Dosage: 20 MG, EACH MORNING
     Route: 048
     Dates: start: 20170508, end: 20170521
  3. LOQOA [Concomitant]
     Indication: OSTEOARTHRITIS
     Dosage: 1 DF, DAILY
     Route: 062
     Dates: start: 20160223

REACTIONS (6)
  - Eyelid ptosis [Not Recovered/Not Resolved]
  - Headache [Recovered/Resolved]
  - Blood pressure increased [Recovered/Resolved]
  - Thirst [Unknown]
  - Dizziness [Recovered/Resolved]
  - Hypoaesthesia [Not Recovered/Not Resolved]

NARRATIVE: CASE EVENT DATE: 2017
